FAERS Safety Report 5257485-0 (Version None)
Quarter: 2007Q1

REPORT INFORMATION
  Report Type: 
  Country: None (occurrence: None)
  Receive Date: 20070307
  Receipt Date: 20060905
  Transmission Date: 20070707
  Serious: Yes (Hospitalization)
  Sender: FDA-Public Use
  Company Number: US-GLAXOSMITHKLINE-A0617273A

PATIENT
  Age: 68 Year
  Sex: Male

DRUGS (5)
  1. REQUIP [Suspect]
     Indication: PARKINSON'S DISEASE
     Dosage: .5MG FOUR TIMES PER DAY
     Route: 048
  2. STALEVO 100 [Concomitant]
  3. CLONAZEPAM [Concomitant]
  4. HYDROCHLOROTHIAZIDE [Concomitant]
  5. AMANTADINE HCL [Concomitant]

REACTIONS (3)
  - FALL [None]
  - MALAISE [None]
  - SOMNOLENCE [None]
